FAERS Safety Report 7817304-2 (Version None)
Quarter: 2011Q4

REPORT INFORMATION
  Report Type: 
  Country: None (occurrence: None)
  Receive Date: 20111017
  Receipt Date: 20111011
  Transmission Date: 20120403
  Serious: Yes (Life-Threatening, Hospitalization, Other)
  Sender: FDA-Public Use
  Company Number: FR-KINGPHARMUSA00001-K201101205

PATIENT
  Age: 84 Year
  Sex: Female

DRUGS (6)
  1. IBUPROFEN [Suspect]
     Dosage: 800 MG, BID
     Route: 048
     Dates: start: 20090101, end: 20110824
  2. REPAGLINIDE [Concomitant]
     Dosage: UNK
     Dates: start: 20100421, end: 20110824
  3. BROMAZANIL [Concomitant]
     Dosage: UNK
     Dates: start: 20090101, end: 20110824
  4. METOCLOPRAMIDE [Concomitant]
     Dosage: UNK
     Dates: start: 20090501, end: 20110101
  5. ALTACE [Suspect]
     Dosage: 5 MG, QD
     Route: 048
     Dates: start: 20100421, end: 20110824
  6. PANTOPRAZOLE SODIUM [Concomitant]
     Dosage: UNK
     Dates: start: 20081201

REACTIONS (6)
  - RENAL FAILURE ACUTE [None]
  - DEHYDRATION [None]
  - BLOOD CREATININE INCREASED [None]
  - BLOOD URIC ACID INCREASED [None]
  - HYPOPHAGIA [None]
  - FLUID INTAKE REDUCED [None]
